FAERS Safety Report 19573700 (Version 2)
Quarter: 2021Q3

REPORT INFORMATION
  Report Type: Report from Study
  Country: US (occurrence: US)
  Receive Date: 20210717
  Receipt Date: 20210810
  Transmission Date: 20211014
  Serious: Yes (Hospitalization, Other)
  Sender: FDA-Public Use
  Company Number: US-TAKEDA-US202015454

PATIENT
  Sex: Female
  Weight: 45.35 kg

DRUGS (19)
  1. LIDOCAINE. [Concomitant]
     Active Substance: LIDOCAINE
  2. AZELASTINE. [Concomitant]
     Active Substance: AZELASTINE HYDROCHLORIDE
  3. ACETAZOLAMIDE. [Concomitant]
     Active Substance: ACETAZOLAMIDE
  4. HUMAN IMMUNOGLOBULIN; HYALURONIDASE [Suspect]
     Active Substance: HUMAN IMMUNOGLOBULIN G\HYALURONIDASE RECOMBINANT HUMAN
     Indication: PRIMARY IMMUNODEFICIENCY SYNDROME
     Dosage: UNK
     Route: 065
  5. HEPARIN [Concomitant]
     Active Substance: HEPARIN SODIUM
  6. LMX [Concomitant]
  7. EPINEPHRINE. [Concomitant]
     Active Substance: EPINEPHRINE
  8. ACETAMINOPHEN. [Concomitant]
     Active Substance: ACETAMINOPHEN
  9. SODIUM CHLORIDE. [Concomitant]
     Active Substance: SODIUM CHLORIDE
  10. VITAMIN B [Concomitant]
     Active Substance: VITAMIN B
  11. NORMAL SALINE [Concomitant]
     Active Substance: SODIUM CHLORIDE
  12. LEVOTHYROXINE. [Concomitant]
     Active Substance: LEVOTHYROXINE
  13. CITALOPRAM [Concomitant]
     Active Substance: CITALOPRAM HYDROBROMIDE
  14. MULTIVITAMIN [Concomitant]
     Active Substance: VITAMINS
  15. HUMAN IMMUNOGLOBULIN; HYALURONIDASE [Suspect]
     Active Substance: HUMAN IMMUNOGLOBULIN G\HYALURONIDASE RECOMBINANT HUMAN
     Indication: IMMUNODEFICIENCY COMMON VARIABLE
     Dosage: 25 GRAM, Q4WEEKS
     Route: 058
     Dates: start: 20170302
  16. COVID?19 VACCINE NOS. [Suspect]
     Active Substance: COVID-19 VACCINE NOS
     Indication: COVID-19 IMMUNISATION
     Route: 065
  17. DIPHENHYDRAMINE. [Concomitant]
     Active Substance: DIPHENHYDRAMINE
  18. LEVOCETIRIZINE [Concomitant]
     Active Substance: LEVOCETIRIZINE
  19. ATORVASTATIN [Concomitant]
     Active Substance: ATORVASTATIN

REACTIONS (5)
  - Vaccination complication [Unknown]
  - Multiple allergies [Unknown]
  - Lip and/or oral cavity cancer [Unknown]
  - Myocardial infarction [Unknown]
  - Neuropathy peripheral [Unknown]
